FAERS Safety Report 7072164-5 (Version None)
Quarter: 2010Q4

REPORT INFORMATION
  Report Type: 
  Country: None (occurrence: None)
  Receive Date: 20101029
  Receipt Date: 20100113
  Transmission Date: 20110411
  Serious: No
  Sender: FDA-Public Use
  Company Number: A0834782A

PATIENT
  Age: 81 Year
  Sex: Female

DRUGS (12)
  1. ADVAIR DISKUS 100/50 [Suspect]
     Indication: ASTHMA
     Dosage: 1PUFF TWICE PER DAY
     Route: 055
     Dates: start: 20090301, end: 20091201
  2. VENTOLIN [Suspect]
     Indication: ASTHMA
     Route: 055
     Dates: start: 19790101
  3. OMEPRAZOLE [Concomitant]
  4. CALCIUM [Concomitant]
  5. SIMVASTATIN [Concomitant]
  6. CLONAZEPAM [Concomitant]
  7. LISINOPRIL [Concomitant]
  8. LEVOTHYROXINE [Concomitant]
  9. SERTRALINE HYDROCHLORIDE [Concomitant]
  10. VITAMIN D [Concomitant]
  11. DAILY VITAMIN [Concomitant]
  12. NEBULIZER [Concomitant]

REACTIONS (5)
  - COUGH [None]
  - DRUG INEFFECTIVE [None]
  - DYSPHONIA [None]
  - EXPIRED DRUG ADMINISTERED [None]
  - PRODUCT QUALITY ISSUE [None]
